FAERS Safety Report 11505792 (Version 4)
Quarter: 2015Q4

REPORT INFORMATION
  Report Type: Spontaneous
  Country: AT (occurrence: None)
  Receive Date: 20150911
  Receipt Date: 20151029
  Transmission Date: 20160304
  Serious: Yes (Hospitalization)
  Sender: FDA-Public Use
  Company Number: AT-LHC-2015117

PATIENT
  Age: 89 Year
  Sex: Female

DRUGS (1)
  1. CONOXIA, MEDIZINISCHES GAS (OXYGEN) (INHALATION GAS) (OXYGEN) (VERUM) [Suspect]
     Active Substance: OXYGEN
     Indication: DYSPNOEA
     Dosage: 3L/MIN, 24 HOURS, INHALATION
     Route: 055
     Dates: start: 20140721

REACTIONS (11)
  - Blister [None]
  - Extremity necrosis [None]
  - Toe amputation [None]
  - Abasia [None]
  - Frostbite [None]
  - Device use error [None]
  - Pain in extremity [None]
  - Accidental exposure to product [None]
  - Medical device complication [None]
  - Onychomadesis [None]
  - Injury associated with device [None]

NARRATIVE: CASE EVENT DATE: 20150831
